FAERS Safety Report 7338038-7 (Version None)
Quarter: 2011Q1

REPORT INFORMATION
  Report Type: 
  Country: None (occurrence: None)
  Receive Date: 20110308
  Receipt Date: 20110222
  Transmission Date: 20110831
  Serious: Yes (Hospitalization)
  Sender: FDA-Public Use
  Company Number: PHHY2010US86156

PATIENT
  Sex: Male

DRUGS (5)
  1. SIMVASTATIN [Concomitant]
     Dosage: 20 MG, QD
  2. DIOVAN [Suspect]
     Dosage: 160 MG, BID
     Route: 048
  3. DIOVAN [Suspect]
     Dosage: 320 MG, QD
  4. WARFARIN [Concomitant]
     Dosage: 5 TIMES PER WEEK
  5. WARFARIN [Concomitant]
     Dosage: 3 MG TWICE A WEEK

REACTIONS (1)
  - CEREBROVASCULAR ACCIDENT [None]
